FAERS Safety Report 11322255 (Version 2)
Quarter: 2015Q3

REPORT INFORMATION
  Report Type: Spontaneous
  Country: FR (occurrence: FR)
  Receive Date: 20150729
  Receipt Date: 20150915
  Transmission Date: 20151125
  Serious: Yes (Other)
  Sender: FDA-Public Use
  Company Number: FR-AMGEN-FRASP2015075026

PATIENT
  Sex: Female
  Weight: 60 kg

DRUGS (2)
  1. KARDEGIC [Concomitant]
     Active Substance: ASPIRIN LYSINE
     Indication: TRANSIENT ISCHAEMIC ATTACK
     Dosage: 75 UNK, QD
     Route: 048
     Dates: start: 201211
  2. PROLIA [Suspect]
     Active Substance: DENOSUMAB
     Indication: OSTEOPOROSIS POSTMENOPAUSAL
     Dosage: 60 MG, Q6MO
     Route: 058
     Dates: start: 20150402, end: 20150402

REACTIONS (7)
  - Respiratory tract infection [Recovered/Resolved]
  - Productive cough [Recovering/Resolving]
  - Ear infection [Recovered/Resolved]
  - Dysphonia [Recovering/Resolving]
  - Sinus headache [Recovering/Resolving]
  - Localised infection [Recovered/Resolved]
  - Pharyngitis [Recovered/Resolved]

NARRATIVE: CASE EVENT DATE: 201504
